FAERS Safety Report 4931435-6 (Version None)
Quarter: 2006Q1

REPORT INFORMATION
  Report Type: 
  Country: None (occurrence: None)
  Receive Date: 20060228
  Receipt Date: 20060213
  Transmission Date: 20060701
  Serious: Yes (Death)
  Sender: FDA-Public Use
  Company Number: 2006S1001334

PATIENT
  Age: 62 Year
  Sex: Male

DRUGS (8)
  1. CLOZAPINE [Suspect]
     Indication: SCHIZOPHRENIA
     Dosage: 100 MG; QD; ORAL
     Route: 048
     Dates: start: 20051125, end: 20060101
  2. DEXAMETHASONE [Concomitant]
  3. DOXEPIN [Concomitant]
  4. ESOMEPRAZOLE [Concomitant]
  5. PREDNISONE [Concomitant]
  6. OMEPRAZOLE [Concomitant]
  7. RISPERIDONE [Concomitant]
  8. PARACETAMOL/HYDROCODONE BITATRATE [Concomitant]

REACTIONS (1)
  - DEATH [None]
